FAERS Safety Report 5905499-7 (Version None)
Quarter: 2008Q4

REPORT INFORMATION
  Report Type: 
  Country: None (occurrence: None)
  Receive Date: 20081001
  Receipt Date: 20081001
  Transmission Date: 20090506
  Serious: Yes (Other)
  Sender: FDA-Public Use
  Company Number: None

PATIENT
  Sex: Male
  Weight: 114.76 kg

DRUGS (2)
  1. SUTENT [Suspect]
     Indication: GASTROINTESTINAL STROMAL TUMOUR
     Dosage: 37.5 MG ONCE DAILY PO
     Route: 048
     Dates: start: 20080710
  2. GLEEVEC [Concomitant]

REACTIONS (3)
  - AORTIC THROMBOSIS [None]
  - EMBOLISM [None]
  - ILIAC ARTERY THROMBOSIS [None]
